FAERS Safety Report 24526105 (Version 4)
Quarter: 2024Q4

REPORT INFORMATION
  Report Type: Spontaneous
  Country: US (occurrence: US)
  Receive Date: 20241021
  Receipt Date: 20241118
  Transmission Date: 20250114
  Serious: No
  Sender: ROCHE
  Company Number: US-ROCHE-10000106814

PATIENT
  Age: 93 Year
  Sex: Female
  Weight: 65.77 kg

DRUGS (1)
  1. ACTEMRA [Suspect]
     Active Substance: TOCILIZUMAB
     Indication: Giant cell arteritis
     Dosage: 162MG ACT PEN
     Route: 058
     Dates: start: 20241010

REACTIONS (5)
  - Wrong technique in device usage process [Unknown]
  - Drug delivery system malfunction [Unknown]
  - Device malfunction [Unknown]
  - No adverse event [Unknown]
  - Wrong technique in product usage process [Unknown]

NARRATIVE: CASE EVENT DATE: 20241010
